FAERS Safety Report 8335425-5 (Version None)
Quarter: 2012Q2

REPORT INFORMATION
  Report Type: 
  Country: None (occurrence: None)
  Receive Date: 20120503
  Receipt Date: 20120426
  Transmission Date: 20120825
  Serious: Yes (Other)
  Sender: FDA-Public Use
  Company Number: CA-ROCHE-1064412

PATIENT
  Sex: Female
  Weight: 95 kg

DRUGS (7)
  1. ACTEMRA [Suspect]
     Indication: RHEUMATOID ARTHRITIS
     Route: 042
     Dates: start: 20120105
  2. ACTEMRA [Suspect]
     Route: 042
     Dates: start: 20120426
  3. PLAQUENIL [Concomitant]
  4. METHOTREXATE [Concomitant]
  5. PREDNISONE TAB [Concomitant]
  6. ACTEMRA [Suspect]
     Route: 042
     Dates: start: 20120229
  7. ACTEMRA [Suspect]
     Route: 042
     Dates: start: 20120329

REACTIONS (1)
  - THROMBOPHLEBITIS [None]
